FAERS Safety Report 5060977-0 (Version None)
Quarter: 2006Q3

REPORT INFORMATION
  Report Type: 
  Country: None (occurrence: None)
  Receive Date: 20060720
  Receipt Date: 20060707
  Transmission Date: 20061208
  Serious: Yes (Hospitalization, Other)
  Sender: FDA-Public Use
  Company Number: 2006AL001450

PATIENT
  Age: 61 Year
  Sex: Female
  Weight: 124.7392 kg

DRUGS (9)
  1. TRIPLE ANTIBIOTIC OINTMENT (BACITRACIN-NEOMYCIN-POLYMYXIN B) (ALPHARMA [Suspect]
     Indication: INFECTION
     Dosage: QD; TOP
     Route: 061
     Dates: start: 20060123, end: 20060401
  2. NORVASC [Concomitant]
  3. CLONIDINE [Concomitant]
  4. HYDROCHLOROTHIAZIDE [Concomitant]
  5. LOTENSIN [Concomitant]
  6. HYDROXYZINE HCL [Concomitant]
  7. CLOTRIMAZOLE-BETAMETHASONE LOTION [Concomitant]
  8. DICLOXACILLIN [Concomitant]
  9. LOTRISONE [Concomitant]

REACTIONS (7)
  - CELLULITIS [None]
  - EXFOLIATIVE RASH [None]
  - FUNGAL SKIN INFECTION [None]
  - LOCALISED INFECTION [None]
  - OEDEMA PERIPHERAL [None]
  - RASH PRURITIC [None]
  - VENOUS STASIS [None]
